FAERS Safety Report 15678264 (Version 1)
Quarter: 2018Q4

REPORT INFORMATION
  Report Type: Spontaneous
  Country: CA (occurrence: CA)
  Receive Date: 20181201
  Receipt Date: 20181201
  Transmission Date: 20190205
  Serious: Yes (Hospitalization, Other)
  Sender: FDA-Public Use
  Company Number: CA-ACCORD-094347

PATIENT
  Age: 8 Year
  Sex: Male

DRUGS (3)
  1. CISPLATIN. [Suspect]
     Active Substance: CISPLATIN
     Indication: OSTEOSARCOMA
     Dosage: CYCLES 1-4: DOXORUBICIN AND CISPLATIN ON DAYS 1 AND 2 AND HIGH DOSE METHOTREXATE FOR WEEKS 4 AND 5.
  2. METHOTREXATE. [Suspect]
     Active Substance: METHOTREXATE
     Indication: OSTEOSARCOMA
     Dosage: CYCLE 1-4 OF DOXORUBICIN AND CISPLATIN ON DAYS 1 AND 2 AND HIGH DOSE METHOTREXATE FOR WEEKS 4 AND 5.
  3. DOXORUBICIN [Suspect]
     Active Substance: DOXORUBICIN
     Indication: OSTEOSARCOMA
     Dosage: CYCLE 1-4 OF DOXORUBICIN AND CISPLATIN ON DAYS 1 AND 2 AND HIGH DOSE METHOTREXATE FOR WEEKS 4 AND 5.

REACTIONS (3)
  - Off label use [Unknown]
  - Mucosal inflammation [Recovered/Resolved]
  - Febrile neutropenia [Recovered/Resolved]
